FAERS Safety Report 9015360 (Version 1)
Quarter: 2013Q1

REPORT INFORMATION
  Report Type: Spontaneous
  Country: US (occurrence: None)
  Receive Date: 20130109
  Receipt Date: 20130109
  Transmission Date: 20140127
  Serious: No
  Sender: FDA-Public Use
  Company Number: None

PATIENT
  Age: 82 Year
  Sex: Female
  Weight: 85.28 kg

DRUGS (1)
  1. XARELTO [Suspect]
     Indication: HEART RATE IRREGULAR
     Dosage: 20 MG 1 TIME DAILY
     Dates: start: 201204, end: 201212

REACTIONS (4)
  - Rash [None]
  - Pruritus [None]
  - Visual impairment [None]
  - Stevens-Johnson syndrome [None]
